FAERS Safety Report 9646683 (Version 1)
Quarter: 2013Q4

REPORT INFORMATION
  Report Type: Spontaneous
  Country: US (occurrence: US)
  Receive Date: 20131027
  Receipt Date: 20131027
  Transmission Date: 20140711
  Serious: No
  Sender: FDA-Public Use
  Company Number: US-009507513-1310USA008356

PATIENT
  Sex: Female

DRUGS (2)
  1. NASONEX [Suspect]
     Indication: SEASONAL ALLERGY
     Dosage: AS DIRECTED
     Route: 045
  2. ADVIL COLD AND SINUS [Concomitant]

REACTIONS (1)
  - Epistaxis [Recovered/Resolved]
